FAERS Safety Report 9095464 (Version 1)
Quarter: 2013Q1

REPORT INFORMATION
  Report Type: Spontaneous
  Country: US (occurrence: None)
  Receive Date: 20130124
  Receipt Date: 20130124
  Transmission Date: 20140127
  Serious: Yes (Death)
  Sender: FDA-Public Use
  Company Number: DSA_61919_2013

PATIENT
  Age: 67 Year
  Sex: Female

DRUGS (1)
  1. XENAZINE 25 MG (NOT SPECIFIED) [Suspect]
     Indication: COORDINATION ABNORMAL
     Route: 048
     Dates: start: 20100113

REACTIONS (1)
  - Ill-defined disorder [None]
